FAERS Safety Report 5684446-X (Version None)
Quarter: 2008Q1

REPORT INFORMATION
  Report Type: 
  Country: None (occurrence: None)
  Receive Date: 20080328
  Receipt Date: 20080319
  Transmission Date: 20080703
  Serious: Yes (Hospitalization, Other)
  Sender: FDA-Public Use
  Company Number: US-MERCK-0706USA00847

PATIENT
  Age: 54 Year
  Sex: Female
  Weight: 54 kg

DRUGS (4)
  1. FOSAMAX [Suspect]
     Indication: OSTEOPOROSIS
     Route: 048
     Dates: start: 20000517, end: 20010201
  2. FOSAMAX [Suspect]
     Route: 048
     Dates: start: 20010401, end: 20060404
  3. PREMARIN [Concomitant]
     Route: 048
     Dates: end: 20050101
  4. CLONIDINE [Concomitant]
     Route: 048
     Dates: start: 20000501

REACTIONS (24)
  - ADVERSE DRUG REACTION [None]
  - ANXIETY [None]
  - ARTHRALGIA [None]
  - ARTHROPATHY [None]
  - BREAST TENDERNESS [None]
  - BUNION [None]
  - DENTAL CARIES [None]
  - DEPRESSION [None]
  - EXOSTOSIS [None]
  - FATIGUE [None]
  - GINGIVAL EROSION [None]
  - HYPERSENSITIVITY [None]
  - INJURY [None]
  - MACULAR DEGENERATION [None]
  - NASAL CONGESTION [None]
  - ORAL HERPES [None]
  - ORTHOSTATIC HYPOTENSION [None]
  - OSTEONECROSIS [None]
  - PAIN IN JAW [None]
  - RESORPTION BONE INCREASED [None]
  - TEMPOROMANDIBULAR JOINT SYNDROME [None]
  - TENDON DISORDER [None]
  - URINARY INCONTINENCE [None]
  - VAGINAL DISORDER [None]
